FAERS Safety Report 6683894-9 (Version None)
Quarter: 2010Q2

REPORT INFORMATION
  Report Type: 
  Country: None (occurrence: None)
  Receive Date: 20100416
  Receipt Date: 20100406
  Transmission Date: 20101027
  Serious: Yes (Hospitalization, Other)
  Sender: FDA-Public Use
  Company Number: US-JNJFOC-20100106326

PATIENT
  Sex: Male

DRUGS (4)
  1. LEVAQUIN [Suspect]
     Indication: DRUG USE FOR UNKNOWN INDICATION
     Route: 048
  2. LEVAQUIN [Suspect]
     Route: 048
  3. LEVAQUIN [Suspect]
     Indication: PNEUMONIA
     Route: 042
  4. METHYLPREDNISOLONE [Suspect]
     Indication: DRUG USE FOR UNKNOWN INDICATION
     Route: 048

REACTIONS (6)
  - DEPRESSION [None]
  - MENISCUS LESION [None]
  - ROTATOR CUFF SYNDROME [None]
  - STRESS [None]
  - TENDON RUPTURE [None]
  - TENDONITIS [None]
